FAERS Safety Report 7208695-4 (Version None)
Quarter: 2011Q1

REPORT INFORMATION
  Report Type: 
  Country: None (occurrence: None)
  Receive Date: 20110104
  Receipt Date: 20101228
  Transmission Date: 20110831
  Serious: No
  Sender: FDA-Public Use
  Company Number: US-PFIZER INC-2010181117

PATIENT
  Age: 42 Year
  Sex: Male
  Weight: 90.703 kg

DRUGS (2)
  1. ZYRTEC [Concomitant]
  2. ADVIL CONGESTION RELIEF [Suspect]
     Dosage: 1 CAPLET, ONE TIME

REACTIONS (1)
  - DRUG EFFECT DECREASED [None]
